FAERS Safety Report 4297024-4 (Version None)
Quarter: 2004Q1

REPORT INFORMATION
  Report Type: 
  Country: None (occurrence: None)
  Receive Date: 20040213
  Receipt Date: 20040203
  Transmission Date: 20041129
  Serious: Yes (Hospitalization)
  Sender: FDA-Public Use
  Company Number: GB-JNJFOC-20040200672

PATIENT
  Age: 59 Year
  Sex: Female

DRUGS (8)
  1. REMICADE [Suspect]
     Indication: RHEUMATOID ARTHRITIS
     Dosage: 270 MG, INTRAVENOUS
     Route: 042
     Dates: start: 20030331, end: 20030601
  2. LEFLUNOMIDE (LEFLUNOMIDE) [Concomitant]
  3. INDOMETHACIN [Concomitant]
  4. PREDNISOLONE [Concomitant]
  5. CO-PROXAMOL (APOREX) [Concomitant]
  6. FORTEPINE (NIFEDIPINE) [Concomitant]
  7. FOLIC ACID [Concomitant]
  8. HRT (ANDROGENS AND FEMALE SIX HORMONES IN COMB) [Concomitant]

REACTIONS (1)
  - POLLAKIURIA [None]
